FAERS Safety Report 18634788 (Version 2)
Quarter: 2020Q4

REPORT INFORMATION
  Report Type: Spontaneous
  Country: IT (occurrence: IT)
  Receive Date: 20201218
  Receipt Date: 20201221
  Transmission Date: 20210114
  Serious: Yes (Other)
  Sender: FDA-Public Use
  Company Number: IT-PFIZER INC-IT-WYE-H11230209

PATIENT
  Age: 72 Year
  Sex: Male

DRUGS (2)
  1. CARVEDILOL. [Concomitant]
     Active Substance: CARVEDILOL
     Indication: SUPRAVENTRICULAR TACHYARRHYTHMIA
     Dosage: 12.5 MG, DAILY
     Route: 048
     Dates: start: 2007, end: 200708
  2. AMIODARONE HCL [Suspect]
     Active Substance: AMIODARONE HYDROCHLORIDE
     Indication: SUPRAVENTRICULAR TACHYARRHYTHMIA
     Dosage: 400 MG, DAILY
     Route: 048
     Dates: start: 2007, end: 200708

REACTIONS (2)
  - Acute kidney injury [Recovered/Resolved]
  - Hypothyroidism [Recovered/Resolved]

NARRATIVE: CASE EVENT DATE: 200708
